FAERS Safety Report 7710346-7 (Version None)
Quarter: 2011Q3

REPORT INFORMATION
  Report Type: 
  Country: None (occurrence: None)
  Receive Date: 20110825
  Receipt Date: 20110523
  Transmission Date: 20111222
  Serious: No
  Sender: FDA-Public Use
  Company Number: US-MYLANLABS-2011S1009935

PATIENT
  Age: 52 Year
  Sex: Female

DRUGS (4)
  1. SYNTHROID [Concomitant]
     Dates: start: 19810101
  2. WELLBUTRIN [Concomitant]
     Dates: start: 20010101
  3. LISINOPRIL [Concomitant]
     Dates: start: 19900101
  4. LANSOPRAZOLE [Suspect]
     Indication: GASTROOESOPHAGEAL REFLUX DISEASE
     Route: 048
     Dates: start: 20101220, end: 20101223

REACTIONS (7)
  - DIZZINESS [None]
  - VOMITING [None]
  - MALAISE [None]
  - FATIGUE [None]
  - ABDOMINAL PAIN [None]
  - ASTHENIA [None]
  - NAUSEA [None]
